FAERS Safety Report 19586923 (Version 5)
Quarter: 2022Q1

REPORT INFORMATION
  Report Type: Other
  Country: JP (occurrence: JP)
  Receive Date: 20210721
  Receipt Date: 20220215
  Transmission Date: 20220423
  Serious: Yes (Hospitalization, Other)
  Sender: FDA-Public Use
  Company Number: JP-CHUGAI-A2021015738ROCHE

PATIENT
  Age: 57 Year
  Sex: Male
  Weight: 71.5 kg

DRUGS (4)
  1. ATEZOLIZUMAB [Suspect]
     Active Substance: ATEZOLIZUMAB
     Indication: Small cell lung cancer extensive stage
     Route: 041
     Dates: start: 20210408, end: 20210408
  2. CARBOPLATIN [Suspect]
     Active Substance: CARBOPLATIN
     Indication: Small cell lung cancer extensive stage
     Dosage: DOSE INTERVAL UNCERTAINTY
     Route: 041
     Dates: start: 20210408
  3. CARBOPLATIN [Suspect]
     Active Substance: CARBOPLATIN
     Dosage: MOST RECENT DOSE OF CARBOPLATIN: 09/JUN/2021
     Route: 041
     Dates: start: 20210513
  4. ETOPOSIDE [Suspect]
     Active Substance: ETOPOSIDE
     Indication: Small cell lung cancer extensive stage
     Dosage: MOST RECENT DOSE RECEIVED ON 11/JUN/2021
     Route: 065
     Dates: start: 20210408

REACTIONS (10)
  - Dysarthria [Recovering/Resolving]
  - Ataxia [Recovering/Resolving]
  - Cervical spinal stenosis [Unknown]
  - Paraneoplastic syndrome [Unknown]
  - Spinal osteoarthritis [Unknown]
  - Neutrophil count decreased [Recovered/Resolved]
  - Hyperglycaemia [Not Recovered/Not Resolved]
  - Constipation [Recovered/Resolved]
  - Nausea [Recovered/Resolved]
  - Platelet count decreased [Recovered/Resolved]

NARRATIVE: CASE EVENT DATE: 20210411
